FAERS Safety Report 10614236 (Version 1)
Quarter: 2014Q4

REPORT INFORMATION
  Report Type: Spontaneous
  Country: US (occurrence: US)
  Receive Date: 20141128
  Receipt Date: 20141128
  Transmission Date: 20150529
  Serious: Yes (Other)
  Sender: FDA-Public Use
  Company Number: US-ELI_LILLY_AND_COMPANY-US201411007710

PATIENT
  Age: 69 Year
  Sex: Male

DRUGS (5)
  1. CYRAMZA [Suspect]
     Active Substance: RAMUCIRUMAB
     Indication: GASTRIC CANCER
     Dosage: UNK UNK, CYCLICAL EVERY 2 WEEKS
     Route: 065
     Dates: start: 20140602, end: 20140728
  2. OXALIPLATIN. [Concomitant]
     Active Substance: OXALIPLATIN
     Dosage: UNK, UNKNOWN
     Route: 065
     Dates: start: 20140829, end: 20140926
  3. EPIRUBICIN [Concomitant]
     Active Substance: EPIRUBICIN
     Dosage: UNK, UNKNOWN
     Route: 065
     Dates: end: 20141017
  4. MITOMYCIN. [Concomitant]
     Active Substance: MITOMYCIN
     Dosage: UNK, UNKNOWN
     Route: 065
     Dates: end: 20141017
  5. EPIRUBICIN [Concomitant]
     Active Substance: EPIRUBICIN
     Dosage: UNK, UNKNOWN
     Route: 065
     Dates: start: 20140829, end: 20140926

REACTIONS (2)
  - Pancytopenia [Unknown]
  - Tumour marker increased [Recovering/Resolving]

NARRATIVE: CASE EVENT DATE: 201407
